FAERS Safety Report 9834053 (Version 4)
Quarter: 2015Q2

REPORT INFORMATION
  Report Type: Report from Study
  Country: US (occurrence: US)
  Receive Date: 20140122
  Receipt Date: 20150514
  Transmission Date: 20150821
  Serious: Yes (Hospitalization)
  Sender: FDA-Public Use
  Company Number: US-ROCHE-1143667

PATIENT
  Age: 67 Year
  Sex: Male
  Weight: 104.33 kg

DRUGS (16)
  1. BEVACIZUMAB [Suspect]
     Active Substance: BEVACIZUMAB
     Indication: COLORECTAL CANCER METASTATIC
     Dosage: DATE OF MOST RECENT DOSE PRIOR TO EVENT ONSET- 11/SEP/2012, 07/JAN/2014
     Route: 042
     Dates: start: 20120724
  2. CARDURA [Concomitant]
     Active Substance: DOXAZOSIN MESYLATE
     Indication: BENIGN PROSTATIC HYPERPLASIA
     Route: 048
     Dates: start: 199708
  3. CITALOPRAM [Concomitant]
     Active Substance: CITALOPRAM HYDROBROMIDE
     Indication: DEPRESSION
     Route: 065
     Dates: start: 20121231
  4. CRESTOR [Concomitant]
     Active Substance: ROSUVASTATIN CALCIUM
     Indication: HYPERCHOLESTEROLAEMIA
     Route: 065
     Dates: start: 201205
  5. LASIX [Concomitant]
     Active Substance: FUROSEMIDE
     Indication: OEDEMA
     Route: 065
     Dates: start: 20130227
  6. OXALIPLATIN. [Suspect]
     Active Substance: OXALIPLATIN
     Indication: COLORECTAL CANCER METASTATIC
     Dosage: DATE OF MOST RECENT DOSE PRIOR TO EVENT ONSET- 25/SEP/2012, 13/NOV/2012
     Route: 042
     Dates: start: 20120724
  7. LEUCOVORIN [Suspect]
     Active Substance: LEUCOVORIN
     Indication: COLORECTAL CANCER METASTATIC
     Dosage: DATE OF MOST RECENT DOSE PRIOR TO EVENT ONSET- 25/SEP/2012, 07/JAN/2014
     Route: 042
     Dates: start: 20120724
  8. 5-FLUOROURACIL [Suspect]
     Active Substance: FLUOROURACIL
     Dosage: MOST RECENT DOSE GIVEN ON 07/JAN/2014
     Route: 042
  9. CITALOPRAM [Concomitant]
     Active Substance: CITALOPRAM HYDROBROMIDE
     Route: 065
     Dates: start: 201212
  10. COUMADIN [Concomitant]
     Active Substance: WARFARIN SODIUM
     Indication: PULMONARY EMBOLISM
     Route: 065
     Dates: start: 20120921
  11. PLACEBO [Suspect]
     Active Substance: UNSPECIFIED INGREDIENT
     Indication: COLORECTAL CANCER METASTATIC
     Dosage: DATE OF MOST RECENT DOSE PRIOR TO EVENT ONSET- 25/SEP/2012, 01/OCT/2013
     Route: 042
     Dates: start: 20120724
  12. SIMVASTATIN. [Concomitant]
     Active Substance: SIMVASTATIN
     Indication: HYPERCHOLESTEROLAEMIA
     Route: 048
     Dates: start: 201205
  13. 5-FLUOROURACIL [Suspect]
     Active Substance: FLUOROURACIL
     Indication: COLORECTAL CANCER METASTATIC
     Dosage: DATE OF MOST RECENT DOSE PRIOR TO EVENT ONSET- 25/SEP/2012. 07/JAN/2014
     Route: 042
     Dates: start: 20120724
  14. NORVASC [Concomitant]
     Active Substance: AMLODIPINE BESYLATE
     Indication: HYPERTENSION
     Route: 048
     Dates: start: 199708
  15. FLOMAX (UNITED STATES) [Concomitant]
     Indication: BENIGN PROSTATIC HYPERPLASIA
     Route: 048
     Dates: start: 201205
  16. SYNTHROID [Concomitant]
     Active Substance: LEVOTHYROXINE SODIUM
     Indication: HYPOTHYROIDISM
     Route: 065
     Dates: start: 200901

REACTIONS (2)
  - Abdominal pain [Recovered/Resolved]
  - Diverticulitis [Recovered/Resolved]

NARRATIVE: CASE EVENT DATE: 20121001
